FAERS Safety Report 9140692 (Version 1)
Quarter: 2013Q1

REPORT INFORMATION
  Report Type: Other
  Country: FR (occurrence: FR)
  Receive Date: 20130305
  Receipt Date: 20130305
  Transmission Date: 20140127
  Serious: Yes (Hospitalization)
  Sender: FDA-Public Use
  Company Number: FR-BRISTOL-MYERS SQUIBB COMPANY-17418278

PATIENT
  Age: 70 Year
  Sex: Female
  Weight: 65 kg

DRUGS (5)
  1. METFORMIN HCL [Suspect]
     Dosage: 1700MG:DOSE
  2. ACETAMINOPHEN [Suspect]
     Indication: POSTOPERATIVE ANALGESIA
     Route: 042
  3. MORPHINE SULFATE [Suspect]
     Indication: POSTOPERATIVE ANALGESIA
     Route: 058
  4. INDAPAMIDE [Suspect]
  5. KETOPROFEN [Suspect]
     Indication: POSTOPERATIVE ANALGESIA
     Route: 042

REACTIONS (2)
  - Lactic acidosis [Recovering/Resolving]
  - Renal failure acute [Recovering/Resolving]
